FAERS Safety Report 22267457 (Version 1)
Quarter: 2023Q2

REPORT INFORMATION
  Report Type: Other
  Country: None (occurrence: KR)
  Receive Date: 20230429
  Receipt Date: 20230429
  Transmission Date: 20230721
  Serious: Yes (Hospitalization)
  Sender: FDA-Public Use
  Company Number: KR-Zhejiang Jingxin Pharmaceutical Co., Ltd-2140935

PATIENT
  Age: 69 Year
  Sex: Female

DRUGS (5)
  1. LEVETIRACETAM [Suspect]
     Active Substance: LEVETIRACETAM
     Indication: Status epilepticus
     Route: 048
  2. DONEPEZIL [Interacting]
     Active Substance: DONEPEZIL
     Route: 065
  3. PHENYTOIN [Interacting]
     Active Substance: PHENYTOIN
     Route: 042
  4. MEMANTINE [Concomitant]
     Active Substance: MEMANTINE
     Route: 065
  5. CIPROFLOXACIN [Concomitant]
     Active Substance: CIPROFLOXACIN
     Route: 065

REACTIONS (3)
  - Tremor [Recovered/Resolved]
  - Drug interaction [Recovered/Resolved]
  - Product use in unapproved indication [Unknown]
